FAERS Safety Report 8426946-5 (Version None)
Quarter: 2012Q2

REPORT INFORMATION
  Report Type: 
  Country: None (occurrence: None)
  Receive Date: 20120611
  Receipt Date: 20120601
  Transmission Date: 20120825
  Serious: Yes (Hospitalization, Other)
  Sender: FDA-Public Use
  Company Number: US-VERTEX PHARMACEUTICALS INC.-AE-2012-008379

PATIENT

DRUGS (3)
  1. INCIVEK [Suspect]
     Indication: HEPATITIS C
     Route: 048
     Dates: start: 20120122, end: 20120217
  2. PEGASYS [Concomitant]
     Indication: HEPATITIS C
     Dates: start: 20120122, end: 20120217
  3. RIBAVIRIN [Concomitant]
     Indication: HEPATITIS C
     Dates: start: 20120122, end: 20120217

REACTIONS (2)
  - IMMUNOSUPPRESSION [None]
  - COMA [None]
